FAERS Safety Report 8550311-3 (Version None)
Quarter: 2012Q3

REPORT INFORMATION
  Report Type: 
  Country: None (occurrence: None)
  Receive Date: 20120730
  Receipt Date: 20120726
  Transmission Date: 20120928
  Serious: Yes (Hospitalization)
  Sender: FDA-Public Use
  Company Number: PHFR2012GB004200

PATIENT
  Sex: Male

DRUGS (2)
  1. CHLORDIAZEPOXIDE [Concomitant]
  2. CLOZARIL [Suspect]
     Indication: SCHIZOPHRENIA
     Route: 048
     Dates: start: 20110208

REACTIONS (1)
  - NEUTROPHIL COUNT INCREASED [None]
